FAERS Safety Report 4483692-0 (Version None)
Quarter: 2004Q4

REPORT INFORMATION
  Report Type: 
  Country: None (occurrence: None)
  Receive Date: 20041021
  Receipt Date: 20040925
  Transmission Date: 20050328
  Serious: Yes (Hospitalization)
  Sender: FDA-Public Use
  Company Number: US-2004-033368

PATIENT
  Sex: Male

DRUGS (2)
  1. CAMPATH [Suspect]
     Dosage: SEE IMAGE
     Dates: start: 20040720, end: 20040911
  2. CAMPATH [Suspect]
     Dosage: SEE IMAGE
     Dates: start: 20040920, end: 20040924

REACTIONS (5)
  - BLOOD PRESSURE DECREASED [None]
  - CYTOMEGALOVIRUS GASTROINTESTINAL INFECTION [None]
  - INTESTINAL PERFORATION [None]
  - LYMPHOMA [None]
  - METASTASES TO GASTROINTESTINAL TRACT [None]
